FAERS Safety Report 16175705 (Version 1)
Quarter: 2019Q2

REPORT INFORMATION
  Report Type: Other
  Country: SE (occurrence: SE)
  Receive Date: 20190409
  Receipt Date: 20190409
  Transmission Date: 20190711
  Serious: Yes (Death, Hospitalization)
  Sender: FDA-Public Use
  Company Number: SE-ARALEZ PHARMACEUTICALS R+D INC.-2019-ARA-001082

PATIENT
  Age: 71 Year
  Sex: Male

DRUGS (14)
  1. WARAN [Suspect]
     Active Substance: WARFARIN SODIUM
     Indication: DEEP VEIN THROMBOSIS
     Dosage: 2.5 MG, UNK
     Route: 048
     Dates: start: 20030109, end: 20030525
  2. FLAGYL [Concomitant]
     Active Substance: METRONIDAZOLE\METRONIDAZOLE HYDROCHLORIDE
  3. FURIX (FUROSEMIDE) [Concomitant]
     Active Substance: FUROSEMIDE
  4. XYLOCAIN                           /00033401/ [Concomitant]
     Active Substance: LIDOCAINE
  5. DUROGESIC [Concomitant]
     Active Substance: FENTANYL
  6. VENTOLINE                          /00139501/ [Concomitant]
     Active Substance: ALBUTEROL
  7. METOPROLOL SUCCINATE. [Suspect]
     Active Substance: METOPROLOL SUCCINATE
     Indication: PRODUCT USED FOR UNKNOWN INDICATION
     Dosage: 100 MG, QD
     Route: 048
     Dates: start: 20021106
  8. SPIRONOLAKTON [Concomitant]
     Active Substance: SPIRONOLACTONE
  9. DIFLUCAN [Concomitant]
     Active Substance: FLUCONAZOLE
  10. AGGRASTAT [Concomitant]
     Active Substance: TIROFIBAN HYDROCHLORIDE
  11. ALVEDON [Concomitant]
     Active Substance: ACETAMINOPHEN
  12. PLAVIX [Suspect]
     Active Substance: CLOPIDOGREL BISULFATE
     Indication: PRODUCT USED FOR UNKNOWN INDICATION
     Dosage: 75 MG, QD
     Route: 048
     Dates: start: 20021107, end: 20021122
  13. ENALAPRIL [Concomitant]
     Active Substance: ENALAPRIL
  14. TROMBYL [Suspect]
     Active Substance: ASPIRIN
     Indication: ACUTE MYOCARDIAL INFARCTION
     Dosage: 75 MG, QD
     Route: 048
     Dates: start: 20021106

REACTIONS (2)
  - Haemorrhage [Fatal]
  - Vasculitis [Fatal]

NARRATIVE: CASE EVENT DATE: 20021122
